FAERS Safety Report 7293079-3 (Version None)
Quarter: 2011Q1

REPORT INFORMATION
  Report Type: 
  Country: None (occurrence: None)
  Receive Date: 20110215
  Receipt Date: 20110204
  Transmission Date: 20110831
  Serious: Yes (Other)
  Sender: FDA-Public Use
  Company Number: US-JNJFOC-20110100800

PATIENT
  Sex: Male
  Weight: 72.58 kg

DRUGS (12)
  1. MINOXIDIL [Concomitant]
     Indication: HYPERTENSION
  2. COLAZAL [Concomitant]
     Indication: COLITIS ULCERATIVE
  3. AZATHIOPRINE [Concomitant]
     Indication: COLITIS ULCERATIVE
  4. LIBRAX [Concomitant]
  5. CORTIFOAM [Concomitant]
  6. REMICADE [Suspect]
     Indication: COLITIS ULCERATIVE
     Route: 042
  7. COREG [Concomitant]
     Indication: HYPERTENSION
  8. DICYCLOMINE [Concomitant]
     Indication: COLITIS ULCERATIVE
  9. COZAAR [Concomitant]
     Indication: HYPERTENSION
  10. TERAZOSIN [Concomitant]
     Indication: BENIGN PROSTATIC HYPERPLASIA
  11. LASIX [Concomitant]
     Indication: HYPERTENSION
  12. CANASA [Concomitant]

REACTIONS (1)
  - BLADDER CANCER [None]
